FAERS Safety Report 25143027 (Version 1)
Quarter: 2025Q2

REPORT INFORMATION
  Report Type: Spontaneous
  Country: GB (occurrence: GB)
  Receive Date: 20250401
  Receipt Date: 20250401
  Transmission Date: 20250717
  Serious: Yes (Hospitalization)
  Sender: PIRAMAL
  Company Number: GB-PIRAMAL CRITICAL CARE LIMITED-2025-PPL-000183

PATIENT

DRUGS (6)
  1. SEVOFLURANE [Suspect]
     Active Substance: SEVOFLURANE
     Indication: General anaesthesia
  2. SEVOFLURANE [Suspect]
     Active Substance: SEVOFLURANE
  3. CISATRACURIUM [Suspect]
     Active Substance: CISATRACURIUM
     Indication: Endotracheal intubation
  4. ACETAMINOPHEN [Concomitant]
     Active Substance: ACETAMINOPHEN
     Indication: Analgesic therapy
  5. DICLOFENAC [Concomitant]
     Active Substance: DICLOFENAC
     Indication: Analgesic therapy
  6. FENTANYL [Concomitant]
     Active Substance: FENTANYL
     Indication: Analgesic therapy

REACTIONS (4)
  - Bradypnoea [Recovered/Resolved]
  - Delayed recovery from anaesthesia [Recovered/Resolved]
  - Dyspnoea [Recovered/Resolved]
  - Hypotension [Recovered/Resolved]
